FAERS Safety Report 15020058 (Version 1)
Quarter: 2018Q2

REPORT INFORMATION
  Report Type: Spontaneous
  Country: DE (occurrence: DE)
  Receive Date: 20180618
  Receipt Date: 20180618
  Transmission Date: 20180711
  Serious: Yes (Hospitalization)
  Sender: FDA-Public Use
  Company Number: DE-TEVA-2018-DE-907420

PATIENT
  Age: 60 Year
  Sex: Female
  Weight: 105 kg

DRUGS (12)
  1. ASS 100 [Suspect]
     Active Substance: ASPIRIN
     Dosage: 1-0-0-0
     Route: 065
  2. TORASEMID [Concomitant]
     Active Substance: TORSEMIDE
     Dosage: 1-0.5-0-0
     Route: 065
  3. KALITRANS [Concomitant]
     Active Substance: POTASSIUM CHLORIDE
     Dosage: NK MG/WEEK, 2 X, EFFERVESCENT TABLETS
     Route: 065
  4. EUTHYROX [Concomitant]
     Active Substance: LEVOTHYROXINE SODIUM
     Dosage: 1-0-0-0
     Route: 065
  5. PANTOPRAZOL [Concomitant]
     Active Substance: PANTOPRAZOLE SODIUM
     Dosage: 1-0-0-0
     Route: 065
  6. CANDESARTAN. [Concomitant]
     Active Substance: CANDESARTAN
     Dosage: 1-0-1-0
     Route: 065
  7. SIMVABETA 20MG [Concomitant]
     Dosage: 0-0-1-0
     Route: 065
  8. NOVAMINSULFON [Concomitant]
     Active Substance: METAMIZOLE
     Dosage: 0-2-2-0
     Route: 065
  9. IBU 800 [Concomitant]
     Dosage: 0-0-1-0
     Route: 065
  10. CABERGOLIN [Suspect]
     Active Substance: CABERGOLINE
     Dosage: 0.5-0-0-0
     Route: 065
  11. CARVEDILOL. [Concomitant]
     Active Substance: CARVEDILOL
     Dosage: 1-0-1-0
     Route: 065
  12. SILOMAT (CLOBUTINOL HYDROCHLORIDE) [Suspect]
     Active Substance: CLOBUTINOL HYDROCHLORIDE
     Dosage: 0-40-0-40, DROP
     Route: 048

REACTIONS (3)
  - Fall [Unknown]
  - Drug prescribing error [Unknown]
  - Haematoma [Unknown]
